FAERS Safety Report 4526857-1 (Version None)
Quarter: 2004Q4

REPORT INFORMATION
  Report Type: 
  Country: None (occurrence: None)
  Receive Date: 20041213
  Receipt Date: 20041206
  Transmission Date: 20050328
  Serious: Yes (Other)
  Sender: FDA-Public Use
  Company Number: K200401852

PATIENT
  Sex: Female

DRUGS (5)
  1. SONATA [Suspect]
  2. OLANZAPINE [Concomitant]
  3. LORAZEPAM [Concomitant]
  4. VALPROATE SODIUM [Concomitant]
  5. MIRTAZAPINE [Concomitant]

REACTIONS (3)
  - DELUSION [None]
  - DRUG WITHDRAWAL SYNDROME [None]
  - PARANOIA [None]
